FAERS Safety Report 12913660 (Version 1)
Quarter: 2016Q4

REPORT INFORMATION
  Report Type: Spontaneous
  Country: US (occurrence: US)
  Receive Date: 20161104
  Receipt Date: 20161104
  Transmission Date: 20170207
  Serious: No
  Sender: FDA-Public Use
  Company Number: US-ALLERGAN-1653482US

PATIENT
  Age: 46 Year
  Sex: Female

DRUGS (2)
  1. LIPITOR [Concomitant]
     Active Substance: ATORVASTATIN CALCIUM
     Indication: BLOOD CHOLESTEROL
     Dosage: UNK
  2. PYLERA [Suspect]
     Active Substance: BISMUTH SUBCITRATE POTASSIUM\METRONIDAZOLE\TETRACYCLINE HYDROCHLORIDE
     Indication: HELICOBACTER INFECTION
     Dosage: UNK
     Route: 048
     Dates: start: 201604

REACTIONS (6)
  - Gastrooesophageal reflux disease [Recovered/Resolved]
  - Dyspnoea [Recovered/Resolved]
  - Insomnia [Recovered/Resolved]
  - Drug intolerance [Unknown]
  - Dyspepsia [Recovered/Resolved]
  - Abdominal discomfort [Recovered/Resolved]
